FAERS Safety Report 5239197-2 (Version None)
Quarter: 2007Q1

REPORT INFORMATION
  Report Type: 
  Country: None (occurrence: None)
  Receive Date: 20061208
  Receipt Date: 20050914
  Transmission Date: 20070707
  Serious: Yes (Other)
  Sender: FDA-Public Use
  Company Number: 2005UW13610

PATIENT
  Age: 64 Year
  Sex: Female
  Weight: 69.853 kg

DRUGS (8)
  1. CRESTOR [Suspect]
     Indication: BLOOD CHOLESTEROL INCREASED
     Dosage: 10 MG DAILY PO
     Route: 048
     Dates: start: 20040901, end: 20041201
  2. CRESTOR [Suspect]
     Indication: BLOOD CHOLESTEROL INCREASED
     Dosage: 20 MG DAILY PO
     Route: 048
     Dates: start: 20041201
  3. LEVOTHROID [Concomitant]
  4. MULTIVITAMIN ^LAPPE^ [Concomitant]
  5. ASPIRIN [Concomitant]
  6. FLAX SEED OIL [Concomitant]
  7. OMEGA 3 [Concomitant]
  8. CHERRY JUICE [Concomitant]

REACTIONS (1)
  - HYPOTRICHOSIS [None]
